FAERS Safety Report 21668600 (Version 1)
Quarter: 2022Q4

REPORT INFORMATION
  Report Type: Spontaneous
  Country: US (occurrence: US)
  Receive Date: 20221201
  Receipt Date: 20221201
  Transmission Date: 20230113
  Serious: No
  Sender: FDA-Public Use
  Company Number: US-SA-SAC20221129001136

PATIENT
  Sex: Male

DRUGS (7)
  1. DUPIXENT [Suspect]
     Active Substance: DUPILUMAB
     Indication: Dermatitis atopic
     Dosage: UNK
     Route: 065
  2. METHOTREXATE [Suspect]
     Active Substance: METHOTREXATE
  3. MONTELUKAST [Suspect]
     Active Substance: MONTELUKAST SODIUM
  4. MYCOPHENOLIC ACID [Suspect]
     Active Substance: MYCOPHENOLIC ACID
  5. CYCLOSPORINE [Suspect]
     Active Substance: CYCLOSPORINE
  6. AZATHIOPRINE [Suspect]
     Active Substance: AZATHIOPRINE
  7. EUCRISA [Suspect]
     Active Substance: CRISABOROLE

REACTIONS (1)
  - Treatment failure [Unknown]
